FAERS Safety Report 10920719 (Version 3)
Quarter: 2015Q2

REPORT INFORMATION
  Report Type: Not Available
  Country: GB (occurrence: GB)
  Receive Date: 20150317
  Receipt Date: 20150522
  Transmission Date: 20150821
  Serious: Yes (Life-Threatening, Other)
  Sender: FDA-Public Use
  Company Number: GB-BEH-2015049522

PATIENT
  Age: 57 Year
  Sex: Female
  Weight: 103 kg

DRUGS (2)
  1. PRIVIGEN [Suspect]
     Active Substance: HUMAN IMMUNOGLOBULIN G
     Indication: TOOTH EXTRACTION
     Dosage: ACCORDING TO PROTOCOL AND WEIGHT
     Route: 042
     Dates: start: 20150225, end: 20150225
  2. PRIVIGEN [Suspect]
     Active Substance: HUMAN IMMUNOGLOBULIN G
     Indication: IMMUNE THROMBOCYTOPENIC PURPURA
     Dosage: ACCORDING TO PROTOCOL AND WEIGHT
     Route: 042
     Dates: start: 20150225, end: 20150225

REACTIONS (13)
  - Respiratory rate increased [Recovered/Resolved]
  - Back pain [Recovered/Resolved]
  - Tachycardia [Recovered/Resolved]
  - Hypotension [Recovered/Resolved]
  - Blood pressure decreased [Recovered/Resolved]
  - Pyrexia [Recovered/Resolved]
  - Nausea [Recovered/Resolved]
  - Hypersensitivity [Recovered/Resolved]
  - Feeling cold [Recovered/Resolved]
  - Headache [Recovered/Resolved]
  - Infusion related reaction [Recovered/Resolved]
  - Malaise [Recovered/Resolved]
  - Chills [Recovered/Resolved]

NARRATIVE: CASE EVENT DATE: 20150225
